FAERS Safety Report 7402847-6 (Version None)
Quarter: 2011Q2

REPORT INFORMATION
  Report Type: 
  Country: None (occurrence: None)
  Receive Date: 20110408
  Receipt Date: 20110404
  Transmission Date: 20111010
  Serious: Yes (Other)
  Sender: FDA-Public Use
  Company Number: US-EISAI INC-E3810-04587-SPO-US

PATIENT
  Sex: Female
  Weight: 75 kg

DRUGS (3)
  1. GOLIMUMAB [Suspect]
     Indication: ANKYLOSING SPONDYLITIS
     Route: 058
     Dates: start: 20100501
  2. ACIPHEX [Suspect]
     Route: 048
  3. CELECOXIB [Concomitant]
     Indication: ANKYLOSING SPONDYLITIS
     Dates: start: 20080101

REACTIONS (3)
  - DRUG INEFFECTIVE [None]
  - SYSTEMIC LUPUS ERYTHEMATOSUS [None]
  - HYPERTENSION [None]
